FAERS Safety Report 26125381 (Version 1)
Quarter: 2025Q4

REPORT INFORMATION
  Report Type: Spontaneous
  Country: EU (occurrence: EU)
  Receive Date: 20251205
  Receipt Date: 20251205
  Transmission Date: 20260118
  Serious: Yes (Life-Threatening, Hospitalization, Other)
  Sender: AUROBINDO
  Company Number: EU-HALEON-2275200

PATIENT
  Age: 50 Year
  Sex: Female

DRUGS (8)
  1. ESOMEPRAZOLE [Suspect]
     Active Substance: ESOMEPRAZOLE
     Indication: Product used for unknown indication
     Dosage: 40 MILLIGRAM, TWO TIMES A DAY
     Route: 065
  2. ESOMEPRAZOLE [Suspect]
     Active Substance: ESOMEPRAZOLE
     Dosage: 20 MILLIGRAM, ONCE A DAY
     Route: 065
  3. DULOXETINE [Concomitant]
     Active Substance: DULOXETINE
     Indication: Supplementation therapy
     Dosage: 30 MILLIGRAM, ONCE A DAY
     Route: 065
  4. TRAZODONE [Concomitant]
     Active Substance: TRAZODONE HYDROCHLORIDE
     Indication: Supplementation therapy
     Dosage: 100 MILLIGRAM, ONCE A DAY
     Route: 065
  5. LEVOTHYROXINE [Concomitant]
     Active Substance: LEVOTHYROXINE
     Indication: Autoimmune thyroiditis
     Dosage: 100 MICROGRAM
     Route: 065
  6. UPADACITINIB [Concomitant]
     Active Substance: UPADACITINIB
     Indication: Psoriatic arthropathy
     Dosage: UNK
     Route: 065
  7. FENOFIBRATE [Concomitant]
     Active Substance: FENOFIBRATE
     Indication: Metabolic syndrome
     Dosage: UNK
     Route: 065
  8. ROSUVASTATIN [Concomitant]
     Active Substance: ROSUVASTATIN
     Indication: Metabolic syndrome
     Dosage: UNK
     Route: 065

REACTIONS (21)
  - Hypomagnesaemia [Recovered/Resolved]
  - Wernicke^s encephalopathy [Recovered/Resolved]
  - Renal failure [Recovered/Resolved]
  - Rhabdomyolysis [Recovered/Resolved]
  - Hypokalaemia [Recovered/Resolved]
  - Vitamin B1 deficiency [Recovered/Resolved]
  - Seizure [Recovering/Resolving]
  - Dysarthria [Recovering/Resolving]
  - Headache [Recovering/Resolving]
  - Photophobia [Recovering/Resolving]
  - Nystagmus [Recovering/Resolving]
  - Gait disturbance [Recovering/Resolving]
  - Electrolyte imbalance [Recovering/Resolving]
  - Paraesthesia [Recovering/Resolving]
  - Vertigo [Recovering/Resolving]
  - Speech disorder [Recovering/Resolving]
  - Tachycardia [Recovering/Resolving]
  - Tremor [Recovering/Resolving]
  - Agitation [Recovering/Resolving]
  - Respiratory alkalosis [Recovering/Resolving]
  - Fall [Recovered/Resolved]
